FAERS Safety Report 21334733 (Version 1)
Quarter: 2022Q3

REPORT INFORMATION
  Report Type: Other
  Country: US (occurrence: US)
  Receive Date: 20220914
  Receipt Date: 20220914
  Transmission Date: 20221026
  Serious: Yes (Hospitalization)
  Sender: FDA-Public Use
  Company Number: US-LEADIANT GMBH-2022STPI000142

PATIENT
  Sex: Female

DRUGS (1)
  1. MATULANE [Suspect]
     Active Substance: PROCARBAZINE HYDROCHLORIDE
     Indication: B-cell lymphoma stage II
     Dosage: 50 MILLIGRAM, 2 CAPSULES (100 MG TOTAL) ONCE DAILY ON DAYS 1 TO 10 OUT OF EVERY 28 DAY CYCLE
     Route: 048
     Dates: start: 20220201

REACTIONS (1)
  - Fall [Unknown]
